FAERS Safety Report 16080167 (Version 3)
Quarter: 2019Q3

REPORT INFORMATION
  Report Type: Spontaneous
  Country: AR (occurrence: AR)
  Receive Date: 20190315
  Receipt Date: 20190919
  Transmission Date: 20191004
  Serious: Yes (Other)
  Sender: FDA-Public Use
  Company Number: PHHY2019AR059770

PATIENT
  Age: 64 Year
  Sex: Female

DRUGS (1)
  1. ACLASTA [Suspect]
     Active Substance: ZOLEDRONIC ACID
     Indication: OSTEOPOROSIS
     Dosage: 1 DF, Q12MO
     Route: 065
     Dates: start: 20190106, end: 20190106

REACTIONS (14)
  - Fall [Recovering/Resolving]
  - Influenza [Recovering/Resolving]
  - Thyroid mass [Unknown]
  - Gait disturbance [Unknown]
  - Feeling abnormal [Recovering/Resolving]
  - Dizziness [Recovering/Resolving]
  - Dysstasia [Unknown]
  - Back pain [Recovering/Resolving]
  - Pain in extremity [Recovering/Resolving]
  - Thoracic vertebral fracture [Recovering/Resolving]
  - Loss of consciousness [Recovering/Resolving]
  - Balance disorder [Unknown]
  - Hyperhidrosis [Recovering/Resolving]
  - Carotid artery disease [Unknown]

NARRATIVE: CASE EVENT DATE: 20190107
